FAERS Safety Report 9875604 (Version 2)
Quarter: 2014Q1

REPORT INFORMATION
  Report Type: Spontaneous
  Country: US (occurrence: US)
  Receive Date: 20140206
  Receipt Date: 20140206
  Transmission Date: 20141002
  Serious: No
  Sender: FDA-Public Use
  Company Number: US-ACORDA-ACO_36669_2013

PATIENT
  Sex: Female

DRUGS (1)
  1. AMPYRA [Suspect]
     Indication: DIZZINESS
     Dosage: 10 MG, BID
     Route: 048

REACTIONS (1)
  - Tooth abscess [Recovered/Resolved]
